FAERS Safety Report 5788715-4 (Version None)
Quarter: 2008Q2

REPORT INFORMATION
  Report Type: 
  Country: None (occurrence: None)
  Receive Date: 20080624
  Receipt Date: 20080611
  Transmission Date: 20081010
  Serious: Yes (Hospitalization)
  Sender: FDA-Public Use
  Company Number: S08-FRA-02134-01

PATIENT
  Age: 81 Year
  Sex: Female

DRUGS (7)
  1. MEMANTINE HCL [Suspect]
     Dosage: 5 MG BID PO
     Route: 048
     Dates: start: 20080425, end: 20080510
  2. LYPANTHYL (FENOFIBRATE) [Suspect]
     Dosage: 145 MG QD PO
     Route: 048
     Dates: end: 20080510
  3. DEPAMIDE (VALPROMIDE) [Concomitant]
  4. ARICEPT [Concomitant]
  5. ATACAND [Concomitant]
  6. VASTAREL (TRIMETAZIDINE) [Concomitant]
  7. ACTONEL [Concomitant]

REACTIONS (6)
  - BLOOD BILIRUBIN INCREASED [None]
  - BLOOD CREATININE INCREASED [None]
  - PANCREATIC PSEUDOCYST [None]
  - PANCREATITIS [None]
  - PERITONEAL EFFUSION [None]
  - PLEURAL EFFUSION [None]
